FAERS Safety Report 7691665-X (Version None)
Quarter: 2011Q3

REPORT INFORMATION
  Report Type: 
  Country: None (occurrence: None)
  Receive Date: 20110818
  Receipt Date: 20110811
  Transmission Date: 20111222
  Serious: Yes (Hospitalization)
  Sender: FDA-Public Use
  Company Number: BR-MEDIMMUNE-MEDI-0013453

PATIENT
  Sex: Male
  Weight: 2.98 kg

DRUGS (4)
  1. BROMOPRIDE [Concomitant]
     Indication: VOMITING
     Route: 048
     Dates: start: 20110420
  2. FERROUS SULFATE TAB [Concomitant]
     Route: 048
     Dates: start: 20110420
  3. SYNAGIS [Suspect]
     Route: 030
     Dates: start: 20110713, end: 20110713
  4. MULTI-VITAMINS [Concomitant]
     Route: 048
     Dates: start: 20110420

REACTIONS (4)
  - PYREXIA [None]
  - PNEUMONIA [None]
  - DEHYDRATION [None]
  - DIARRHOEA [None]
